FAERS Safety Report 7555126-0 (Version None)
Quarter: 2011Q2

REPORT INFORMATION
  Report Type: 
  Country: None (occurrence: None)
  Receive Date: 20110617
  Receipt Date: 20110603
  Transmission Date: 20111010
  Serious: Yes (Hospitalization)
  Sender: FDA-Public Use
  Company Number: GB-UCBSA-034463

PATIENT
  Sex: Female
  Weight: 45 kg

DRUGS (4)
  1. ALBUTEROL [Concomitant]
     Dosage: 2 PUFFS
     Route: 048
     Dates: start: 20080808
  2. CLENIL [Concomitant]
     Dosage: 2 PUFFS MORNING+EVENING
     Route: 048
     Dates: start: 20100201, end: 20100701
  3. KEPPRA [Suspect]
     Indication: EPILEPSY
     Route: 048
     Dates: start: 20080215
  4. MIDAZOLAM BUCCAL [Concomitant]
     Dosage: 10 MG/ML
     Route: 048
     Dates: start: 20080727, end: 20100625

REACTIONS (1)
  - EPILEPSY [None]
